FAERS Safety Report 5322928-0 (Version None)
Quarter: 2007Q1

REPORT INFORMATION
  Report Type: 
  Country: None (occurrence: None)
  Receive Date: 20070220
  Receipt Date: 20061122
  Transmission Date: 20070707
  Serious: No
  Sender: FDA-Public Use
  Company Number: TPA2006A02113

PATIENT
  Age: 46 Year
  Sex: Female
  Weight: 134.7183 kg

DRUGS (10)
  1. ROZEREM [Suspect]
     Indication: INSOMNIA
     Dosage: SEE IMAGE
     Route: 048
     Dates: start: 20060401, end: 20060501
  2. ROZEREM [Suspect]
     Indication: INSOMNIA
     Dosage: SEE IMAGE
     Route: 048
     Dates: start: 20060901
  3. MESTINON [Concomitant]
  4. TOPAMAX [Concomitant]
  5. ZYRTEC [Concomitant]
  6. EC-NAPROSYN [Concomitant]
  7. RHINOCORT [Concomitant]
  8. PROFEN FORTE (GUAIFENESIN, PHENYLPROPANOLAMINE HYDROCHLORIDE) [Concomitant]
  9. PINDOLOL [Concomitant]
  10. AMBIEN [Concomitant]

REACTIONS (1)
  - DRUG INEFFECTIVE [None]
